FAERS Safety Report 4767405-0 (Version None)
Quarter: 2005Q3

REPORT INFORMATION
  Report Type: 
  Country: None (occurrence: None)
  Receive Date: 20050909
  Receipt Date: 20050826
  Transmission Date: 20060218
  Serious: Yes (Death)
  Sender: FDA-Public Use
  Company Number: USA-2005-0020953

PATIENT
  Age: 57 Year
  Sex: Male

DRUGS (9)
  1. OXYCONTIN [Suspect]
     Dosage: 80 MG , Q12 H, ORAL
     Route: 048
     Dates: start: 20000101
  2. METHADON HCL TAB [Suspect]
     Indication: PAIN
  3. LASIX (FUROSEMIDE0 [Concomitant]
  4. ENALAPRIL MALEATE [Concomitant]
  5. PAXIL [Concomitant]
  6. EFFEXOR [Concomitant]
  7. XANAX [Concomitant]
  8. DESYREL [Concomitant]
  9. NEBULIZERS [Concomitant]

REACTIONS (3)
  - CARDIAC FAILURE CONGESTIVE [None]
  - PAIN [None]
  - RESPIRATORY FAILURE [None]
